FAERS Safety Report 8064208-9 (Version None)
Quarter: 2011Q4

REPORT INFORMATION
  Report Type: 
  Country: None (occurrence: None)
  Receive Date: 20111221
  Receipt Date: 20110519
  Transmission Date: 20120403
  Serious: No
  Sender: FDA-Public Use
  Company Number: 2011S1000036

PATIENT
  Age: 45 Year
  Sex: Male

DRUGS (1)
  1. KRYSTEXXA [Suspect]
     Indication: GOUT
     Dosage: IV
     Route: 042

REACTIONS (1)
  - GOUT [None]
